FAERS Safety Report 8544680-8 (Version None)
Quarter: 2012Q3

REPORT INFORMATION
  Report Type: 
  Country: None (occurrence: None)
  Receive Date: 20120727
  Receipt Date: 20120717
  Transmission Date: 20120928
  Serious: Yes (Hospitalization, Other)
  Sender: FDA-Public Use
  Company Number: FR-ROCHE-1074262

PATIENT
  Sex: Male
  Weight: 75 kg

DRUGS (4)
  1. ZELBORAF [Suspect]
  2. ALLOPURINOL [Concomitant]
     Indication: HYPERURICAEMIA
     Route: 048
  3. VITAMIN D [Concomitant]
  4. ZELBORAF [Suspect]
     Indication: MALIGNANT MELANOMA
     Route: 048
     Dates: start: 20120427, end: 20120516

REACTIONS (2)
  - DRUG ERUPTION [None]
  - RENAL FAILURE [None]
